FAERS Safety Report 14410850 (Version 2)
Quarter: 2018Q1

REPORT INFORMATION
  Report Type: Spontaneous
  Country: DE (occurrence: DE)
  Receive Date: 20180119
  Receipt Date: 20180215
  Transmission Date: 20180509
  Serious: Yes (Other)
  Sender: FDA-Public Use
  Company Number: DE-ASTRAZENECA-2018SE05944

PATIENT
  Age: 30424 Day
  Sex: Male
  Weight: 100 kg

DRUGS (2)
  1. SYMBICORT [Suspect]
     Active Substance: BUDESONIDE\FORMOTEROL FUMARATE DIHYDRATE
     Dosage: 160/4.UG5, TWO TIMES A DAY
     Route: 055
     Dates: start: 20171222, end: 20171225
  2. TAMSULOSIN [Concomitant]
     Active Substance: TAMSULOSIN
     Indication: BENIGN PROSTATIC HYPERPLASIA

REACTIONS (5)
  - Oral mucosal erythema [Recovering/Resolving]
  - Dysphagia [Recovering/Resolving]
  - Lip swelling [Recovering/Resolving]
  - Mouth injury [Recovering/Resolving]
  - Oral pain [Not Recovered/Not Resolved]

NARRATIVE: CASE EVENT DATE: 20171225
